FAERS Safety Report 15569610 (Version 1)
Quarter: 2018Q4

REPORT INFORMATION
  Report Type: Spontaneous
  Country: US (occurrence: US)
  Receive Date: 20181025
  Receipt Date: 20181025
  Transmission Date: 20190205
  Serious: No
  Sender: FDA-Public Use
  Company Number: None

PATIENT
  Sex: Male

DRUGS (1)
  1. AFINITOR [Suspect]
     Active Substance: EVEROLIMUS
     Indication: LYMPHOMA
     Route: 048
     Dates: start: 20180726

REACTIONS (6)
  - Nausea [None]
  - Headache [None]
  - Stomatitis [None]
  - Anxiety [None]
  - Agitation [None]
  - Diarrhoea [None]
